FAERS Safety Report 25267805 (Version 1)
Quarter: 2025Q2

REPORT INFORMATION
  Report Type: Spontaneous
  Country: PT (occurrence: PT)
  Receive Date: 20250505
  Receipt Date: 20250505
  Transmission Date: 20250716
  Serious: Yes (Hospitalization, Other)
  Sender: HIKMA
  Company Number: PT-MLMSERVICE-20250414-PI477833-00247-1

PATIENT
  Age: 77 Year
  Sex: Male

DRUGS (2)
  1. ONDANSETRON [Suspect]
     Active Substance: ONDANSETRON
     Indication: Premedication
     Route: 042
  2. DEXAMETHASONE [Concomitant]
     Active Substance: DEXAMETHASONE
     Indication: Premedication
     Route: 042

REACTIONS (7)
  - Somnolence [Recovered/Resolved]
  - Hemiparesis [Recovered/Resolved]
  - Altered state of consciousness [Recovered/Resolved]
  - Mobility decreased [Recovered/Resolved]
  - Facial paresis [Recovered/Resolved]
  - Pupillary light reflex tests abnormal [Recovered/Resolved]
  - Miosis [Recovered/Resolved]
